FAERS Safety Report 24736319 (Version 2)
Quarter: 2024Q4

REPORT INFORMATION
  Report Type: Spontaneous
  Country: DE (occurrence: DE)
  Receive Date: 20241216
  Receipt Date: 20241230
  Transmission Date: 20250115
  Serious: Yes (Other)
  Sender: ALKEM
  Company Number: None

PATIENT
  Age: 25 Year
  Sex: Male

DRUGS (13)
  1. MYCOPHENOLATE MOFETIL [Suspect]
     Active Substance: MYCOPHENOLATE MOFETIL
     Indication: Prophylaxis against graft versus host disease
     Dosage: UNK
     Route: 065
  2. MYCOPHENOLATE MOFETIL [Suspect]
     Active Substance: MYCOPHENOLATE MOFETIL
     Dosage: UNK, (DOSE TAPER)
     Route: 065
  3. FINGOLIMOD [Suspect]
     Active Substance: FINGOLIMOD
     Indication: JC virus infection
     Dosage: UNK
     Route: 065
  4. FINGOLIMOD [Suspect]
     Active Substance: FINGOLIMOD
     Indication: Viraemia
     Dosage: UNK, (RE-INITIATION)
     Route: 065
  5. TACROLIMUS [Suspect]
     Active Substance: TACROLIMUS
     Indication: Chronic graft versus host disease in eye
     Dosage: UNK
     Route: 065
  6. TACROLIMUS [Suspect]
     Active Substance: TACROLIMUS
     Indication: Chronic graft versus host disease in liver
  7. METHYLPREDNISOLONE [Suspect]
     Active Substance: METHYLPREDNISOLONE
     Indication: Chronic graft versus host disease in eye
     Dosage: UNK
     Route: 065
  8. METHYLPREDNISOLONE [Suspect]
     Active Substance: METHYLPREDNISOLONE
     Indication: Chronic graft versus host disease in liver
     Dosage: UNK, (DOSE TAPER)
     Route: 065
  9. METHYLPREDNISOLONE [Suspect]
     Active Substance: METHYLPREDNISOLONE
     Dosage: UNK, (DOSE TAPER)
     Route: 065
  10. THYMOCYTE IMMUNE GLOBULIN NOS [Suspect]
     Active Substance: THYMOCYTE IMMUNE GLOBULIN NOS
     Indication: Prophylaxis against graft versus host disease
     Dosage: UNK
     Route: 065
  11. THYMOCYTE IMMUNE GLOBULIN NOS [Suspect]
     Active Substance: THYMOCYTE IMMUNE GLOBULIN NOS
     Dosage: UNK, (DOSE TAPER)
     Route: 065
  12. CYCLOSPORINE [Suspect]
     Active Substance: CYCLOSPORINE
     Indication: Prophylaxis against graft versus host disease
     Dosage: UNK
     Route: 065
  13. CYCLOSPORINE [Suspect]
     Active Substance: CYCLOSPORINE
     Dosage: UNK, (DOSE TAPER)
     Route: 065

REACTIONS (13)
  - Disorientation [Not Recovered/Not Resolved]
  - Retrograde amnesia [Not Recovered/Not Resolved]
  - Seizure [Not Recovered/Not Resolved]
  - Rebound effect [Unknown]
  - Pleocytosis [Not Recovered/Not Resolved]
  - Drug ineffective [Unknown]
  - Off label use [Unknown]
  - Chronic graft versus host disease in eye [Recovered/Resolved]
  - Chronic graft versus host disease in liver [Recovered/Resolved]
  - JC virus infection [Recovered/Resolved]
  - BK virus infection [Unknown]
  - COVID-19 [Unknown]
  - Drug effective for unapproved indication [Unknown]
